FAERS Safety Report 11035940 (Version 2)
Quarter: 2015Q2

REPORT INFORMATION
  Report Type: Spontaneous
  Country: US (occurrence: US)
  Receive Date: 20150415
  Receipt Date: 20150525
  Transmission Date: 20150821
  Serious: No
  Sender: FDA-Public Use
  Company Number: US-JNJFOC-20131201269

PATIENT
  Age: 71 Year
  Sex: Female
  Weight: 86.18 kg

DRUGS (1)
  1. XARELTO [Suspect]
     Active Substance: RIVAROXABAN
     Indication: KNEE ARTHROPLASTY
     Route: 048
     Dates: start: 20130916, end: 20130925

REACTIONS (5)
  - Skin discolouration [Not Recovered/Not Resolved]
  - Blister [Recovering/Resolving]
  - Scar [Not Recovered/Not Resolved]
  - Swelling [Recovered/Resolved]
  - Scab [Not Recovered/Not Resolved]

NARRATIVE: CASE EVENT DATE: 2013
